FAERS Safety Report 20710801 (Version 3)
Quarter: 2022Q2

REPORT INFORMATION
  Report Type: Other
  Country: US (occurrence: None)
  Receive Date: 20220414
  Receipt Date: 20220504
  Transmission Date: 20220721
  Serious: Yes (Other)
  Sender: FDA-Public Use
  Company Number: US-ROCHE-3075165

PATIENT
  Age: 59 Year
  Sex: Female

DRUGS (38)
  1. XOLAIR [Suspect]
     Active Substance: OMALIZUMAB
     Indication: Chronic spontaneous urticaria
     Route: 058
     Dates: start: 20210104
  2. XOLAIR [Suspect]
     Active Substance: OMALIZUMAB
  3. XOLAIR [Suspect]
     Active Substance: OMALIZUMAB
  4. XOLAIR [Suspect]
     Active Substance: OMALIZUMAB
     Indication: Urticaria
  5. XOLAIR [Suspect]
     Active Substance: OMALIZUMAB
  6. XOLAIR [Suspect]
     Active Substance: OMALIZUMAB
  7. HYDROCORTISONE [Concomitant]
     Active Substance: HYDROCORTISONE
  8. SOLU-CORTEF [Concomitant]
     Active Substance: HYDROCORTISONE SODIUM SUCCINATE
  9. SYNTHROID [Concomitant]
     Active Substance: LEVOTHYROXINE SODIUM
  10. ONDANSETRON [Concomitant]
     Active Substance: ONDANSETRON
  11. FLUCONAZOLE [Concomitant]
     Active Substance: FLUCONAZOLE
  12. VALACYCLOVIR [Concomitant]
     Active Substance: VALACYCLOVIR HYDROCHLORIDE
  13. PREMARIN [Concomitant]
     Active Substance: ESTROGENS, CONJUGATED
  14. PROAIR HFA [Concomitant]
     Active Substance: ALBUTEROL SULFATE
  15. EPIPEN [Concomitant]
     Active Substance: EPINEPHRINE
  16. OXYCODONE [Concomitant]
     Active Substance: OXYCODONE
  17. ESTRADIOL [Concomitant]
     Active Substance: ESTRADIOL
  18. BENADRYL [Concomitant]
     Active Substance: DIPHENHYDRAMINE HYDROCHLORIDE
  19. QUETIAPINE [Concomitant]
     Active Substance: QUETIAPINE
  20. CYTOMEL [Concomitant]
     Active Substance: LIOTHYRONINE SODIUM
  21. FORTEO [Concomitant]
     Active Substance: TERIPARATIDE
  22. NEUTROPINE [Concomitant]
  23. MIRALAX [Concomitant]
     Active Substance: POLYETHYLENE GLYCOL 3350
  24. METAMUCIL [Concomitant]
     Active Substance: PLANTAGO SEED
  25. LORATADINE [Concomitant]
     Active Substance: LORATADINE
  26. FAMOTIDINE [Concomitant]
     Active Substance: FAMOTIDINE
  27. ALLEGRA ALLERGY [Concomitant]
     Active Substance: FEXOFENADINE HYDROCHLORIDE
  28. AUVI-Q [Concomitant]
     Active Substance: EPINEPHRINE
  29. LIDOCAINE [Concomitant]
     Active Substance: LIDOCAINE
  30. TRELEGY ELLIPTA [Concomitant]
     Active Substance: FLUTICASONE FUROATE\UMECLIDINIUM BROMIDE\VILANTEROL TRIFENATATE
  31. AZELASTINE [Concomitant]
     Active Substance: AZELASTINE
  32. BUDESONIDE [Concomitant]
     Active Substance: BUDESONIDE
  33. ALBUTEROL [Concomitant]
     Active Substance: ALBUTEROL
  34. ZAFIRLUKAST [Concomitant]
     Active Substance: ZAFIRLUKAST
  35. MICONAZOLE [Concomitant]
     Active Substance: MICONAZOLE
  36. PROMETHAZINE [Concomitant]
     Active Substance: PROMETHAZINE HYDROCHLORIDE
  37. BACLOFEN [Concomitant]
     Active Substance: BACLOFEN
  38. ERGOCALCIFEROL [Concomitant]
     Active Substance: ERGOCALCIFEROL

REACTIONS (5)
  - Anaphylactic reaction [Recovered/Resolved]
  - Blister [Recovered/Resolved]
  - Sleep apnoea syndrome [Not Recovered/Not Resolved]
  - Gastrooesophageal reflux disease [Not Recovered/Not Resolved]
  - Dermatitis contact [Unknown]

NARRATIVE: CASE EVENT DATE: 20210818
